FAERS Safety Report 8001509-4 (Version None)
Quarter: 2011Q4

REPORT INFORMATION
  Report Type: 
  Country: None (occurrence: None)
  Receive Date: 20111222
  Receipt Date: 20111221
  Transmission Date: 20120403
  Serious: Yes (Hospitalization)
  Sender: FDA-Public Use
  Company Number: US-JNJFOC-20111209310

PATIENT
  Sex: Male
  Weight: 83.01 kg

DRUGS (3)
  1. PLAVIX [Concomitant]
     Indication: CARDIAC VALVE DISEASE
     Route: 048
     Dates: start: 20050101
  2. STELARA [Suspect]
     Indication: PSORIASIS
     Route: 058
     Dates: start: 20100101, end: 20110101
  3. ASPIRIN [Concomitant]
     Indication: CARDIAC VALVE DISEASE
     Route: 048
     Dates: start: 20050101

REACTIONS (2)
  - INFECTION [None]
  - LIMB CRUSHING INJURY [None]
